FAERS Safety Report 24046052 (Version 4)
Quarter: 2024Q3

REPORT INFORMATION
  Report Type: Spontaneous
  Country: US (occurrence: US)
  Receive Date: 20240703
  Receipt Date: 20240916
  Transmission Date: 20241017
  Serious: No
  Sender: PFIZER
  Company Number: US-PFIZER INC-PV202400086199

PATIENT
  Age: 67 Year
  Sex: Female

DRUGS (7)
  1. DOCETAXEL [Suspect]
     Active Substance: DOCETAXEL\DOCETAXEL ANHYDROUS
     Indication: Breast cancer female
     Dosage: 150 MG, CYCLIC (C1 AND C2, EVERY THREE WEEKS)
     Dates: start: 20200612, end: 202007
  2. DOCETAXEL [Suspect]
     Active Substance: DOCETAXEL\DOCETAXEL ANHYDROUS
     Dosage: 117 MG, SINGLE (C3, EVERY THREE WEEKS)
     Dates: start: 20200723, end: 20200723
  3. TAXOTERE [Suspect]
     Active Substance: DOCETAXEL
     Indication: Breast cancer female
     Dosage: 150 MG, CYCLIC (C1 AND C2, EVERY THREE WEEKS)
     Dates: start: 20200612, end: 202007
  4. TAXOTERE [Suspect]
     Active Substance: DOCETAXEL
     Dosage: 117 MG, SINGLE (C3, EVERY THREE WEEKS)
     Dates: start: 20200723, end: 20200723
  5. CARBOPLATIN [Concomitant]
     Active Substance: CARBOPLATIN
     Indication: Chemotherapy
     Dosage: UNK
  6. TRASTUZUMAB [Concomitant]
     Active Substance: TRASTUZUMAB
     Indication: Chemotherapy
     Dosage: UNK
  7. PERTUZUMAB [Concomitant]
     Active Substance: PERTUZUMAB
     Indication: Chemotherapy
     Dosage: UNK

REACTIONS (2)
  - Lacrimation increased [Not Recovered/Not Resolved]
  - Lacrimal structure injury [Not Recovered/Not Resolved]

NARRATIVE: CASE EVENT DATE: 20200701
